FAERS Safety Report 7499213-4 (Version None)
Quarter: 2011Q2

REPORT INFORMATION
  Report Type: 
  Country: None (occurrence: None)
  Receive Date: 20110524
  Receipt Date: 20110511
  Transmission Date: 20111010
  Serious: Yes (Hospitalization, Other)
  Sender: FDA-Public Use
  Company Number: JP-BAYER-201010016BYL

PATIENT
  Age: 78 Year
  Sex: Male

DRUGS (12)
  1. GLAKAY [Concomitant]
     Dosage: 45 MG (DAILY DOSE), , ORAL
     Route: 048
  2. URSO 250 [Concomitant]
     Dosage: 600 MG (DAILY DOSE), , ORAL
     Route: 048
  3. RABEPRAZOLE SODIUM [Concomitant]
     Dosage: 10 MG (DAILY DOSE), , ORAL
     Route: 048
  4. UFT [Concomitant]
     Dosage: 300 MG (DAILY DOSE), , ORAL
     Route: 048
     Dates: start: 20090921
  5. ADJUST-A [Concomitant]
     Dosage: 80 MG (DAILY DOSE), , ORAL
     Route: 048
  6. LIVACT [Concomitant]
     Dosage: 12.45 G (DAILY DOSE), , ORAL
     Route: 048
  7. FALKAMIN [Concomitant]
     Dosage: 12.45 G (DAILY DOSE), , ORAL
     Route: 048
  8. MAGNESIUM SULFATE [Concomitant]
     Dosage: 1980 MG (DAILY DOSE), , ORAL
     Route: 048
  9. NEXAVAR [Suspect]
     Route: 048
     Dates: start: 20091230, end: 20100102
  10. NEXAVAR [Suspect]
     Indication: HEPATIC NEOPLASM MALIGNANT
     Dosage: 800 MG (DAILY DOSE), , ORAL
     Route: 048
     Dates: start: 20091221, end: 20091227
  11. NEXAVAR [Suspect]
     Dosage: 400 MG (DAILY DOSE), , ORAL
     Route: 048
     Dates: start: 20091228, end: 20091229
  12. UFTORAL [Concomitant]
     Dosage: 300 MG (DAILY DOSE), , ORAL
     Route: 048
     Dates: start: 20090921

REACTIONS (12)
  - ASPARTATE AMINOTRANSFERASE INCREASED [None]
  - ERYTHEMA MULTIFORME [None]
  - LIP EROSION [None]
  - BLOOD CREATINE PHOSPHOKINASE INCREASED [None]
  - PYREXIA [None]
  - ALANINE AMINOTRANSFERASE INCREASED [None]
  - THROMBOCYTOPENIA [None]
  - BLOOD ALBUMIN DECREASED [None]
  - HAEMORRHAGE [None]
  - ABDOMINAL PAIN [None]
  - HYPOPHOSPHATAEMIA [None]
  - BLOOD BILIRUBIN INCREASED [None]
